FAERS Safety Report 16914372 (Version 1)
Quarter: 2019Q4

REPORT INFORMATION
  Report Type: Spontaneous
  Country: US (occurrence: US)
  Receive Date: 20191014
  Receipt Date: 20191014
  Transmission Date: 20200122
  Serious: Yes (Other)
  Sender: FDA-Public Use
  Company Number: US-TEVA-2019-US-1121152

PATIENT
  Age: 66 Year
  Sex: Female

DRUGS (2)
  1. CLONIDINE HYDROCHLORIDE TEVA [Suspect]
     Active Substance: CLONIDINE HYDROCHLORIDE
     Indication: BLOOD PRESSURE MEASUREMENT
     Route: 065
  2. CLONIDINE HYDROCHLORIDE MYLAN [Concomitant]
     Active Substance: CLONIDINE HYDROCHLORIDE

REACTIONS (3)
  - Product substitution issue [Unknown]
  - Blood pressure systolic increased [Unknown]
  - Headache [Unknown]
